FAERS Safety Report 5570691-0 (Version None)
Quarter: 2007Q4

REPORT INFORMATION
  Report Type: 
  Country: None (occurrence: None)
  Receive Date: 20071221
  Receipt Date: 20070906
  Transmission Date: 20080405
  Serious: No
  Sender: FDA-Public Use
  Company Number: US-BAUSCH-2007BL003217

PATIENT
  Age: 73 Year
  Sex: Female

DRUGS (4)
  1. ALAWAY [Suspect]
     Indication: EYE ALLERGY
     Route: 047
     Dates: start: 20070816, end: 20070905
  2. MAXIDEX [Concomitant]
     Indication: POSTOPERATIVE CARE
     Route: 047
  3. OPTI-FREE [Concomitant]
  4. PATANOL [Concomitant]
     Route: 047

REACTIONS (4)
  - DRUG HYPERSENSITIVITY [None]
  - ERYTHEMA [None]
  - ERYTHEMA OF EYELID [None]
  - SKIN BURNING SENSATION [None]
